FAERS Safety Report 19453250 (Version 1)
Quarter: 2021Q2

REPORT INFORMATION
  Report Type: Spontaneous
  Country: HN (occurrence: HN)
  Receive Date: 20210623
  Receipt Date: 20210623
  Transmission Date: 20210717
  Serious: Yes (Hospitalization, Other)
  Sender: FDA-Public Use
  Company Number: NVSC2021HN135356

PATIENT
  Sex: Male

DRUGS (1)
  1. GLIVEC [Suspect]
     Active Substance: IMATINIB MESYLATE
     Indication: CHRONIC MYELOID LEUKAEMIA
     Dosage: 400 MG (1X400 MG TABLET)
     Route: 065

REACTIONS (4)
  - Liver disorder [Unknown]
  - Renal disorder [Unknown]
  - Chronic myeloid leukaemia recurrent [Unknown]
  - Thrombosis [Unknown]
